FAERS Safety Report 25619760 (Version 1)
Quarter: 2025Q3

REPORT INFORMATION
  Report Type: Spontaneous
  Country: EU (occurrence: EU)
  Receive Date: 20250729
  Receipt Date: 20250729
  Transmission Date: 20251020
  Serious: Yes (Other)
  Sender: JOHNSON AND JOHNSON
  Company Number: EU-JNJFOC-20250735375

PATIENT
  Age: 73 Year
  Sex: Female

DRUGS (4)
  1. XARELTO [Suspect]
     Active Substance: RIVAROXABAN
     Indication: Angina pectoris
     Dosage: 20 MG, QD
     Route: 048
     Dates: start: 20250517, end: 20250716
  2. Conoran [Concomitant]
     Indication: Dyspnoea
  3. Desone [Concomitant]
     Indication: Product used for unknown indication
  4. Etosis [Concomitant]
     Indication: Product used for unknown indication

REACTIONS (25)
  - Urinary retention [Unknown]
  - Pustule [Unknown]
  - Urticaria [Unknown]
  - Insomnia [Unknown]
  - Motor dysfunction [Unknown]
  - Pain in extremity [Unknown]
  - Tendon pain [Unknown]
  - Dizziness [Unknown]
  - Dysstasia [Unknown]
  - Headache [Unknown]
  - Dyspnoea [Unknown]
  - Hypotension [Unknown]
  - Epistaxis [Unknown]
  - Pruritus [Unknown]
  - Lacrimation increased [Unknown]
  - Venipuncture [Unknown]
  - Oedema peripheral [Unknown]
  - Blister [Unknown]
  - Face oedema [Unknown]
  - Localised oedema [Unknown]
  - Hyperhidrosis [Unknown]
  - Abnormal faeces [Unknown]
  - Alopecia [Unknown]
  - Scab [Unknown]
  - Product use in unapproved indication [Unknown]

NARRATIVE: CASE EVENT DATE: 20250623
